FAERS Safety Report 12592882 (Version 2)
Quarter: 2016Q3

REPORT INFORMATION
  Report Type: Spontaneous
  Country: JP (occurrence: JP)
  Receive Date: 20160726
  Receipt Date: 20160807
  Transmission Date: 20161109
  Serious: Yes (Other)
  Sender: FDA-Public Use
  Company Number: PHJP2016JP020943

PATIENT
  Age: 49 Year
  Sex: Female

DRUGS (1)
  1. ZOLEDRONATE [Suspect]
     Active Substance: ZOLEDRONIC ACID
     Indication: METASTASES TO BONE
     Dosage: UNK
     Route: 041

REACTIONS (8)
  - Pathological fracture [Unknown]
  - Primary sequestrum [Unknown]
  - Oroantral fistula [Unknown]
  - Exposed bone in jaw [Unknown]
  - Osteonecrosis of jaw [Unknown]
  - Pain in jaw [Unknown]
  - Bone swelling [Unknown]
  - Hypophagia [Unknown]

NARRATIVE: CASE EVENT DATE: 201401
